FAERS Safety Report 9783161 (Version 1)
Quarter: 2013Q4

REPORT INFORMATION
  Report Type: Spontaneous
  Country: US (occurrence: US)
  Receive Date: 20131226
  Receipt Date: 20131226
  Transmission Date: 20140711
  Serious: No
  Sender: FDA-Public Use
  Company Number: US-B.I. PHARMACEUTICALS,INC./RIDGEFIELD-2013-BI-42262BP

PATIENT
  Sex: Female
  Weight: 73 kg

DRUGS (4)
  1. PRADAXA [Suspect]
     Indication: ATRIAL FIBRILLATION
     Dosage: 300 MG
     Route: 048
     Dates: start: 2010
  2. METOPROLOL [Concomitant]
     Indication: ATRIAL FIBRILLATION
     Dosage: 200 MG
     Route: 048
  3. LEVOTHYROID [Concomitant]
     Indication: HYPOTHYROIDISM
     Dosage: 100 MCG
     Route: 048
  4. FUROSEMIDE [Concomitant]
     Indication: FLUID RETENTION
     Dosage: 20 MG
     Route: 048

REACTIONS (2)
  - Fatigue [Not Recovered/Not Resolved]
  - Hypersensitivity [Recovered/Resolved]
